FAERS Safety Report 8440130-0 (Version None)
Quarter: 2012Q2

REPORT INFORMATION
  Report Type: 
  Country: None (occurrence: None)
  Receive Date: 20120615
  Receipt Date: 20120606
  Transmission Date: 20120825
  Serious: Yes (Other)
  Sender: FDA-Public Use
  Company Number: US-ACTELION-A-US2012-67216

PATIENT

DRUGS (2)
  1. ADCIRCA [Concomitant]
  2. VENTAVIS [Suspect]
     Indication: PULMONARY ARTERIAL HYPERTENSION
     Dosage: UNK
     Route: 055
     Dates: start: 20110105

REACTIONS (2)
  - PULMONARY THROMBOSIS [None]
  - PULMONARY ARTERIAL PRESSURE ABNORMAL [None]
